FAERS Safety Report 13933546 (Version 3)
Quarter: 2017Q4

REPORT INFORMATION
  Report Type: Report from Study
  Country: US (occurrence: US)
  Receive Date: 20170904
  Receipt Date: 20171010
  Transmission Date: 20180320
  Serious: Yes (Hospitalization, Other)
  Sender: FDA-Public Use
  Company Number: PHEH2017US027897

PATIENT
  Age: 28 Year
  Sex: Male
  Weight: 47.62 kg

DRUGS (1)
  1. GILENYA [Suspect]
     Active Substance: FINGOLIMOD HYDROCHLORIDE
     Indication: MULTIPLE SCLEROSIS
     Dosage: UNK UNK, QD
     Route: 048
     Dates: start: 201504

REACTIONS (3)
  - Loss of consciousness [Unknown]
  - Seizure [Recovered/Resolved]
  - Muscle rigidity [Unknown]

NARRATIVE: CASE EVENT DATE: 20170809
